FAERS Safety Report 9916070 (Version 1)
Quarter: 2014Q1

REPORT INFORMATION
  Report Type: Spontaneous
  Country: JP (occurrence: None)
  Receive Date: 20140219
  Receipt Date: 20140219
  Transmission Date: 20141002
  Serious: Yes (Death)
  Sender: FDA-Public Use
  Company Number: KAD201402-000257

PATIENT
  Sex: 0

DRUGS (1)
  1. RIBAVIRIN(RIBAVIRIN) [Suspect]
     Indication: HEPATITIS C

REACTIONS (1)
  - Cerebral haemorrhage [None]
